FAERS Safety Report 6947023-6 (Version None)
Quarter: 2010Q3

REPORT INFORMATION
  Report Type: 
  Country: None (occurrence: None)
  Receive Date: 20100827
  Receipt Date: 20090831
  Transmission Date: 20110219
  Serious: No
  Sender: FDA-Public Use
  Company Number: US-ABBOTT-09P-163-0594892-00

PATIENT
  Sex: Male
  Weight: 79.45 kg

DRUGS (2)
  1. NIASPAN [Suspect]
     Indication: BLOOD CHOLESTEROL INCREASED
     Dosage: NIGHTLY
     Dates: start: 20090817
  2. ASPIRIN [Concomitant]
     Indication: PROPHYLAXIS
     Dates: start: 20090817

REACTIONS (3)
  - DERMATITIS CONTACT [None]
  - FLUSHING [None]
  - PRURITUS GENERALISED [None]
